FAERS Safety Report 4709196-5 (Version None)
Quarter: 2005Q3

REPORT INFORMATION
  Report Type: 
  Country: None (occurrence: None)
  Receive Date: 20050706
  Receipt Date: 20050615
  Transmission Date: 20060218
  Serious: Yes (Hospitalization)
  Sender: FDA-Public Use
  Company Number: DEU-2003-0000559

PATIENT
  Age: 43 Year
  Sex: Female
  Weight: 63 kg

DRUGS (12)
  1. MORPHINE SULFATE [Suspect]
     Indication: PAIN
     Dosage: 4.3 MG, DAILY, INTRATHECAL
     Route: 037
     Dates: start: 20010612
  2. MORPHINE SULFATE [Concomitant]
  3. PASPERTIN (METOCLOPRAMIDE HYDROCHLORIDE) [Concomitant]
  4. LACTULOSE [Concomitant]
  5. ANAFRANIL [Concomitant]
  6. RANITIDINE [Concomitant]
  7. THOMAPYRIN (PHENACETIN) [Concomitant]
  8. SWEATOSAN (SALVIA) [Concomitant]
  9. DIPYRONE TAB [Concomitant]
  10. LEFAX (SILICON DIOXIDE, COLLOIDAL, DIMETICONE) [Concomitant]
  11. DEXIBUPROFEN (DEXIBUPROFEN) [Concomitant]
  12. BUPIVACAINE [Concomitant]

REACTIONS (9)
  - BLOOD PRESSURE SYSTOLIC INCREASED [None]
  - DIARRHOEA [None]
  - HALLUCINATION, GUSTATORY [None]
  - HALLUCINATION, OLFACTORY [None]
  - HYPERHIDROSIS [None]
  - NAUSEA [None]
  - PANIC ATTACK [None]
  - RASH [None]
  - VOMITING [None]
